FAERS Safety Report 8975527 (Version 2)
Quarter: 2013Q1

REPORT INFORMATION
  Report Type: Spontaneous
  Country: US (occurrence: US)
  Receive Date: 20121219
  Receipt Date: 20130207
  Transmission Date: 20140127
  Serious: No
  Sender: FDA-Public Use
  Company Number: US-ASTRAZENECA-2012SE92319

PATIENT
  Age: 76 Year
  Sex: Female
  Weight: 78 kg

DRUGS (8)
  1. CRESTOR [Suspect]
     Indication: BLOOD CHOLESTEROL INCREASED
     Route: 048
     Dates: start: 20110928, end: 20121024
  2. CRESTOR [Suspect]
     Indication: BLOOD CHOLESTEROL INCREASED
     Route: 048
     Dates: start: 20121206
  3. MUPIROCIN [Concomitant]
     Indication: SKIN DISORDER
  4. DESOXIMETASONE [Concomitant]
     Indication: SKIN DISORDER
  5. SIMVASTATIN [Concomitant]
  6. PRAVASTATIN [Concomitant]
  7. ATIVAN [Concomitant]
     Indication: ANXIETY DISORDER
  8. VITAMIN D 5000 U [Concomitant]

REACTIONS (4)
  - Alopecia [Not Recovered/Not Resolved]
  - Alopecia [Unknown]
  - Blood cholesterol increased [Unknown]
  - Drug dose omission [Unknown]
